FAERS Safety Report 10834428 (Version 1)
Quarter: 2015Q1

REPORT INFORMATION
  Report Type: Report from Study
  Country: US (occurrence: US)
  Receive Date: 20150219
  Receipt Date: 20150219
  Transmission Date: 20150721
  Serious: No
  Sender: FDA-Public Use
  Company Number: US-ABBVIE-14P-163-1210181-00

PATIENT
  Age: 36 Year
  Sex: Female

DRUGS (6)
  1. 4LIFE TRANSFER FACTOR [Concomitant]
     Indication: IMMUNE SYSTEM DISORDER
  2. ALEVE [Concomitant]
     Active Substance: NAPROXEN SODIUM
     Indication: PAIN
  3. HUMIRA [Suspect]
     Active Substance: ADALIMUMAB
     Indication: PSORIATIC ARTHROPATHY
     Dosage: MONTHLY
     Dates: start: 2011, end: 201201
  4. HUMIRA [Suspect]
     Active Substance: ADALIMUMAB
     Dosage: 1 PEN
     Dates: start: 201202, end: 201202
  5. HUMIRA [Suspect]
     Active Substance: ADALIMUMAB
     Dates: start: 2013, end: 201401
  6. HUMIRA [Suspect]
     Active Substance: ADALIMUMAB
     Dates: start: 201401

REACTIONS (2)
  - Psoriatic arthropathy [Recovered/Resolved]
  - Psoriatic arthropathy [Not Recovered/Not Resolved]

NARRATIVE: CASE EVENT DATE: 201201
